FAERS Safety Report 8971741 (Version 1)
Quarter: 2012Q4

REPORT INFORMATION
  Report Type: 
  Country: US (occurrence: US)
  Receive Date: 20121217
  Receipt Date: 20121217
  Transmission Date: 20130627
  Serious: No
  Sender: FDA-Public Use
  Company Number: US-BAYER-2012-131640

PATIENT
  Sex: Female

DRUGS (2)
  1. ALEVE GELCAP [Suspect]
     Dosage: 1 DF, PRN
     Route: 048
     Dates: start: 201212
  2. CENTRUM MULTIVITAMIN [Concomitant]

REACTIONS (1)
  - Drug ineffective [None]
